FAERS Safety Report 16445818 (Version 1)
Quarter: 2019Q2

REPORT INFORMATION
  Report Type: Spontaneous
  Country: IT (occurrence: IT)
  Receive Date: 20190618
  Receipt Date: 20190618
  Transmission Date: 20190711
  Serious: Yes (Other)
  Sender: FDA-Public Use
  Company Number: IT-MYLANLABS-2019M1055999

PATIENT
  Sex: Female

DRUGS (2)
  1. PREDNISONE. [Suspect]
     Active Substance: PREDNISONE
     Indication: PRODUCT USED FOR UNKNOWN INDICATION
     Dosage: 12.5 MG, QD
     Route: 048
  2. ACETYLSALICYLIC ACID [Suspect]
     Active Substance: ASPIRIN
     Indication: PRODUCT USED FOR UNKNOWN INDICATION
     Dosage: 100 MG, QD

REACTIONS (10)
  - Haemolytic anaemia [Unknown]
  - Dilatation atrial [Unknown]
  - Platelet count decreased [Recovered/Resolved]
  - Blindness [Unknown]
  - Exposure during pregnancy [Unknown]
  - Dilatation ventricular [Unknown]
  - Ejection fraction decreased [Unknown]
  - Epistaxis [Unknown]
  - Haemoglobinuria [Unknown]
  - Pre-eclampsia [Unknown]

NARRATIVE: CASE EVENT DATE: 2013
